FAERS Safety Report 15001949 (Version 12)
Quarter: 2022Q4

REPORT INFORMATION
  Report Type: Report from Study
  Country: GB (occurrence: GB)
  Receive Date: 20180612
  Receipt Date: 20221103
  Transmission Date: 20230113
  Serious: Yes (Death, Hospitalization)
  Sender: FDA-Public Use
  Company Number: GB-EMA-DD-20180507-HJAINP-143207

PATIENT
  Age: 50 Year
  Sex: Female

DRUGS (90)
  1. DOCETAXEL [Suspect]
     Active Substance: DOCETAXEL
     Indication: Breast cancer metastatic
     Dosage: 150 MG, EVERY 3 WEEKS
     Route: 042
     Dates: start: 20160621, end: 20161026
  2. PERTUZUMAB [Suspect]
     Active Substance: PERTUZUMAB
     Indication: Breast cancer metastatic
     Dosage: 840 MG, LOADING DOSE SINGLE
     Route: 042
     Dates: start: 20160620, end: 20160620
  3. PERTUZUMAB [Suspect]
     Active Substance: PERTUZUMAB
     Dosage: 420 MG, EVERY 3 WEEKS MAINTENANCE DOSE
     Route: 042
     Dates: start: 20160714, end: 20161026
  4. CAPECITABINE [Suspect]
     Active Substance: CAPECITABINE
     Indication: Breast cancer metastatic
     Dosage: 2000 MG, 1X/DAY
     Route: 048
     Dates: start: 20160427, end: 20160525
  5. TRASTUZUMAB [Suspect]
     Active Substance: TRASTUZUMAB
     Indication: Breast cancer metastatic
     Dosage: 651 MG, EVERY 3 WEEKS
     Route: 042
     Dates: start: 20160620, end: 20160620
  6. TRASTUZUMAB [Suspect]
     Active Substance: TRASTUZUMAB
     Dosage: 483 MG, EVERY 3 WEEKS MAINTENANCE DOSE
     Route: 042
     Dates: start: 20160714, end: 20161026
  7. ADO-TRASTUZUMAB EMTANSINE [Suspect]
     Active Substance: ADO-TRASTUZUMAB EMTANSINE
     Indication: Breast cancer metastatic
     Dosage: 651 MG, EVERY 3 WEEKS
     Route: 042
     Dates: start: 20160620, end: 20160620
  8. ADO-TRASTUZUMAB EMTANSINE [Suspect]
     Active Substance: ADO-TRASTUZUMAB EMTANSINE
     Dosage: 483 MG, EVERY 3 WEEKS
     Route: 042
     Dates: start: 20160714, end: 20160714
  9. ADO-TRASTUZUMAB EMTANSINE [Suspect]
     Active Substance: ADO-TRASTUZUMAB EMTANSINE
     Dosage: 240 MG, EVERY 3 WEEKS
     Route: 042
     Dates: start: 20161123, end: 20161123
  10. ADO-TRASTUZUMAB EMTANSINE [Suspect]
     Active Substance: ADO-TRASTUZUMAB EMTANSINE
     Dosage: 220 MG, EVERY 3 WEEKS
     Route: 042
     Dates: start: 20170112, end: 20170112
  11. ADO-TRASTUZUMAB EMTANSINE [Suspect]
     Active Substance: ADO-TRASTUZUMAB EMTANSINE
     Dosage: 200 MG, EVERY 3 WEEKS
     Route: 042
     Dates: start: 20170209, end: 20170209
  12. DAPSONE [Concomitant]
     Active Substance: DAPSONE
     Dosage: 100 MG, 1X/DAY
     Route: 048
     Dates: start: 20161218, end: 201711
  13. ENOXAPARIN [Concomitant]
     Active Substance: ENOXAPARIN
     Dosage: 150 MG
     Route: 058
     Dates: start: 20160901, end: 20160903
  14. ENOXAPARIN [Concomitant]
     Active Substance: ENOXAPARIN
     Dosage: 150 MG
     Route: 058
     Dates: start: 20171119, end: 20171127
  15. FILGRASTIM [Concomitant]
     Active Substance: FILGRASTIM
     Dosage: 300 UG
     Route: 058
     Dates: start: 20161123, end: 20170209
  16. FUSIDIC ACID [Concomitant]
     Active Substance: FUSIDIC ACID
     Dosage: UNK, 4X/DAY
     Route: 061
     Dates: start: 20171123, end: 20171208
  17. HYDROCORTISONE [Concomitant]
     Active Substance: HYDROCORTISONE
     Dosage: UNK
     Route: 042
     Dates: start: 20160914, end: 20161026
  18. LOPERAMIDE [Concomitant]
     Active Substance: LOPERAMIDE
     Dosage: 4 MG
     Route: 048
  19. METOCLOPRAMIDE [Concomitant]
     Active Substance: METOCLOPRAMIDE
     Indication: Vomiting
     Dosage: UNK
     Route: 042
     Dates: start: 20170916, end: 20170916
  20. METOCLOPRAMIDE [Concomitant]
     Active Substance: METOCLOPRAMIDE
     Dosage: UNK
     Route: 042
     Dates: start: 20171021, end: 20171023
  21. METOCLOPRAMIDE [Concomitant]
     Active Substance: METOCLOPRAMIDE
     Indication: Vomiting
     Dosage: UNK
     Route: 048
     Dates: start: 20160621, end: 20161026
  22. NOVORAPID [Concomitant]
     Active Substance: INSULIN ASPART
     Dosage: UNK
     Route: 030
  23. CHLORPHENIRAMINE MALEATE [Concomitant]
     Active Substance: CHLORPHENIRAMINE MALEATE
     Dosage: UNK
     Route: 042
     Dates: start: 20160914, end: 20161026
  24. SULFAMETHOXAZOLE\TRIMETHOPRIM [Concomitant]
     Active Substance: SULFAMETHOXAZOLE\TRIMETHOPRIM
     Dosage: UNK
     Route: 048
     Dates: start: 201612, end: 20161218
  25. VENTOLIN [Concomitant]
     Active Substance: ALBUTEROL SULFATE
     Dosage: UNK
     Route: 065
  26. ONDANSETRON [Concomitant]
     Active Substance: ONDANSETRON
     Indication: Vomiting
     Dosage: 4 MG, 2X/DAY
     Route: 042
     Dates: start: 20160907, end: 20160907
  27. ONDANSETRON [Concomitant]
     Active Substance: ONDANSETRON
     Dosage: 4 MG, 2X/DAY
     Dates: start: 20161231, end: 20170104
  28. ONDANSETRON [Concomitant]
     Active Substance: ONDANSETRON
     Dosage: 4 MG, 2X/DAY
     Route: 042
     Dates: start: 20170119, end: 201702
  29. ONDANSETRON [Concomitant]
     Active Substance: ONDANSETRON
     Dosage: 4 MG, 2X/DAY
     Dates: start: 20170307, end: 20170318
  30. ONDANSETRON [Concomitant]
     Active Substance: ONDANSETRON
     Dosage: 8 MG/1XDAY
     Dates: start: 20170915
  31. ONDANSETRON [Concomitant]
     Active Substance: ONDANSETRON
     Dosage: 8 MG, 3X/DAY  (TIME INTERVAL: 0.33 D)
     Route: 048
  32. BACTROBAN [Concomitant]
     Active Substance: MUPIROCIN\MUPIROCIN CALCIUM
     Dosage: (TIME INTERVAL: 0.33 D)
     Route: 061
     Dates: start: 20161219, end: 20161223
  33. SODIUM PHOSPHATE, MONOBASIC, ANHYDROUS [Concomitant]
     Active Substance: SODIUM PHOSPHATE, MONOBASIC, ANHYDROUS
     Dosage: TIME INTERVAL: 0.33 D
     Route: 048
     Dates: start: 20170119, end: 20170122
  34. SODIUM PHOSPHATE, MONOBASIC, ANHYDROUS [Concomitant]
     Active Substance: SODIUM PHOSPHATE, MONOBASIC, ANHYDROUS
     Dosage: TIME INTERVAL: 0.33 D
     Route: 048
     Dates: start: 20171121, end: 20171206
  35. SERETIDE [Concomitant]
     Active Substance: FLUTICASONE PROPIONATE\SALMETEROL XINAFOATE
     Dosage: UNK, DAILY
     Dates: start: 20170101, end: 20170104
  36. CARBOCYSTEINE [Concomitant]
     Active Substance: CARBOCYSTEINE
     Indication: Vomiting
     Dosage: 750 MG, 3X/DAY
     Dates: start: 20170102, end: 20170104
  37. CARBOCYSTEINE [Concomitant]
     Active Substance: CARBOCYSTEINE
     Dosage: 750 MG, 3X/DAY
     Route: 048
     Dates: start: 20170314, end: 20170318
  38. NYSTATIN [Concomitant]
     Active Substance: NYSTATIN
     Dosage: 1 ML, 4X/DAY, PRN
     Dates: start: 20170101
  39. LEVEMIR [Concomitant]
     Active Substance: INSULIN DETEMIR
     Dosage: 50 IU, DAILY
  40. ACETAMINOPHEN [Concomitant]
     Active Substance: ACETAMINOPHEN
     Dosage: 1 G, AS NEEDED
     Dates: start: 20171025
  41. DOMPERIDONE [Concomitant]
     Active Substance: DOMPERIDONE
     Dosage: 10 MG, AS NEEDED
     Route: 048
     Dates: start: 20171023, end: 20171025
  42. DOXYCYCLINE [Concomitant]
     Active Substance: DOXYCYCLINE
     Dosage: UNK
     Dates: start: 20161005, end: 201611
  43. DOXYCYCLINE [Concomitant]
     Active Substance: DOXYCYCLINE
     Dosage: 200 MG, 1X/DAY
     Dates: start: 20161222, end: 20161222
  44. DOXYCYCLINE [Concomitant]
     Active Substance: DOXYCYCLINE
     Dosage: 100 MG UNK
     Route: 048
     Dates: start: 20161223, end: 20161227
  45. DOXYCYCLINE [Concomitant]
     Active Substance: DOXYCYCLINE
     Dosage: 100 MG, UNK
     Route: 048
     Dates: start: 20170104, end: 20170107
  46. MEROPENEM [Concomitant]
     Active Substance: MEROPENEM
     Indication: Productive cough
     Dosage: 1 G, 2X/DAY
     Route: 042
     Dates: start: 20160903, end: 20160904
  47. MEROPENEM [Concomitant]
     Active Substance: MEROPENEM
     Indication: Neutropenic sepsis
     Dosage: 1 G, 3X/DAY
     Route: 042
     Dates: start: 20161231, end: 20170103
  48. MEROPENEM [Concomitant]
     Active Substance: MEROPENEM
     Indication: Vomiting
     Dosage: 1 G, 2X/DAY
     Dates: start: 20161217, end: 20161217
  49. MEROPENEM [Concomitant]
     Active Substance: MEROPENEM
     Dosage: 1 G, 3X/DAY
     Dates: start: 20161231, end: 20170103
  50. MEROPENEM [Concomitant]
     Active Substance: MEROPENEM
     Dosage: 500 MG, 3X/DAY
     Route: 042
     Dates: start: 20170307, end: 20170314
  51. CYCLIZINE [Concomitant]
     Active Substance: CYCLIZINE
     Dosage: UNK, 3X/DAY
     Route: 048
     Dates: start: 20160907, end: 20160909
  52. CYCLIZINE [Concomitant]
     Active Substance: CYCLIZINE
     Dosage: 50 MG ONCE
     Route: 048
     Dates: start: 20161222, end: 20161222
  53. CYCLIZINE [Concomitant]
     Active Substance: CYCLIZINE
     Dosage: 50 MG 3X/DAY
     Route: 048
     Dates: start: 20161231, end: 20170104
  54. CYCLIZINE [Concomitant]
     Active Substance: CYCLIZINE
     Dosage: 50 UNK
     Route: 048
     Dates: start: 20170306, end: 20170317
  55. CYCLIZINE [Concomitant]
     Active Substance: CYCLIZINE
     Dosage: 50 MG 3X/DAY
     Route: 048
     Dates: start: 20170307
  56. PREGABALIN [Concomitant]
     Active Substance: PREGABALIN
     Dosage: 75 MG UNK
     Route: 048
     Dates: start: 20170308
  57. GABAPENTIN [Concomitant]
     Active Substance: GABAPENTIN
     Dosage: 300 MG, 3X/DAY
     Route: 048
     Dates: start: 20161222, end: 2017
  58. MORPHINE SULFATE [Concomitant]
     Active Substance: MORPHINE SULFATE
     Indication: Vomiting
     Dosage: 10 MG, 2X/DAY
     Route: 048
     Dates: start: 20160907, end: 20160909
  59. CALCIUM CARBONATE [Concomitant]
     Active Substance: CALCIUM CARBONATE
     Dosage: UNK, DAILY
     Route: 048
  60. ENOXAPARIN [Concomitant]
     Active Substance: ENOXAPARIN
     Dosage: 150 MG, 1X/DAY
     Route: 058
     Dates: start: 20160901, end: 20160901
  61. ENOXAPARIN [Concomitant]
     Active Substance: ENOXAPARIN
     Dosage: 120 MG 1X/DAY
     Route: 058
     Dates: start: 20161231, end: 20170103
  62. ENOXAPARIN [Concomitant]
     Active Substance: ENOXAPARIN
     Dosage: 120 MG 1X/DAY
     Route: 058
     Dates: start: 20170306, end: 20170306
  63. ENOXAPARIN [Concomitant]
     Active Substance: ENOXAPARIN
     Dosage: 113 MG, 1X/DAY
     Route: 058
     Dates: start: 20170307, end: 20170307
  64. ENOXAPARIN [Concomitant]
     Active Substance: ENOXAPARIN
     Dosage: 40 MG 1X/DAY
     Route: 058
     Dates: start: 20171023, end: 20171023
  65. ENOXAPARIN [Concomitant]
     Active Substance: ENOXAPARIN
     Dosage: 40 MG 1X/DAY
     Route: 058
     Dates: start: 20171119, end: 20171127
  66. OCTENISAN [ALLANTOIN;OCTENIDINE HYDROCHLORIDE] [Concomitant]
     Dosage: UNK
     Route: 061
     Dates: start: 20161219, end: 20161223
  67. DEXAMETHASONE [Concomitant]
     Active Substance: DEXAMETHASONE
     Dosage: 8 MG, 3X/DAY
     Route: 048
     Dates: start: 20160621, end: 20161026
  68. DEXAMETHASONE [Concomitant]
     Active Substance: DEXAMETHASONE
     Dosage: 4 MG, 3X/DAY
     Route: 048
     Dates: start: 20160907, end: 201702
  69. DEXAMETHASONE [Concomitant]
     Active Substance: DEXAMETHASONE
     Dosage: 4 MG 3X/DAY
     Route: 048
     Dates: start: 20170103, end: 20170109
  70. LEVOMEPROMAZINE [Concomitant]
     Active Substance: LEVOMEPROMAZINE
     Dosage: 6.25 MG PRN
     Route: 058
     Dates: start: 20171024, end: 20171025
  71. OXETACAINE [Concomitant]
     Active Substance: OXETHAZAINE
     Dosage: 10 MG, PRN
     Route: 048
     Dates: start: 20160902, end: 20160904
  72. FLUCONAZOLE [Concomitant]
     Active Substance: FLUCONAZOLE
     Indication: Vomiting
     Dosage: 50 MG, 1X/DAY
     Route: 048
     Dates: start: 20160907, end: 20160913
  73. FLUCONAZOLE [Concomitant]
     Active Substance: FLUCONAZOLE
     Indication: Oral candidiasis
     Dosage: 50 MG, 1X/DAY
     Route: 048
     Dates: start: 20161222, end: 20161229
  74. FLUCONAZOLE [Concomitant]
     Active Substance: FLUCONAZOLE
     Dosage: 50 MG 1X/DAY
     Route: 048
     Dates: start: 20170201, end: 201702
  75. FLUCONAZOLE [Concomitant]
     Active Substance: FLUCONAZOLE
     Dosage: 50 MG 1X/DAY
     Route: 048
     Dates: start: 20170307, end: 20170310
  76. FLUCONAZOLE [Concomitant]
     Active Substance: FLUCONAZOLE
     Dosage: 50 MG 1X/DAY
     Route: 048
     Dates: start: 20171124, end: 20171130
  77. FLUCONAZOLE [Concomitant]
     Active Substance: FLUCONAZOLE
     Dosage: 50 MG, 1X/DAY
     Route: 048
     Dates: start: 20171124, end: 20171228
  78. CIPROFLOXACIN [Concomitant]
     Active Substance: CIPROFLOXACIN
     Indication: Neutropenic sepsis
     Dosage: 500 MG, 2X/DAY
     Route: 048
     Dates: start: 20171121, end: 20171127
  79. CIPROFLOXACIN [Concomitant]
     Active Substance: CIPROFLOXACIN
     Indication: Vomiting
  80. CIPROFLOXACIN [Concomitant]
     Active Substance: CIPROFLOXACIN
     Indication: Neutropenic sepsis
     Dosage: 400 MG, 2X/DAY
     Route: 042
     Dates: start: 20160901, end: 20160902
  81. CIPROFLOXACIN [Concomitant]
     Active Substance: CIPROFLOXACIN
     Indication: Vomiting
  82. HARTMANS [Concomitant]
     Indication: Vomiting
     Dosage: PRN
     Route: 042
     Dates: start: 20171020, end: 20171022
  83. VANCOMYCIN [Concomitant]
     Active Substance: VANCOMYCIN
     Dosage: 1.5 MG, UNK
     Route: 042
     Dates: start: 20160901, end: 20160901
  84. SODIUM CHLORIDE [Concomitant]
     Active Substance: SODIUM CHLORIDE
     Dosage: PRN
     Route: 042
     Dates: start: 20171020, end: 20171022
  85. LANSOPRAZOLE [Concomitant]
     Active Substance: LANSOPRAZOLE
     Dosage: 30 MG, 1X/DAY
     Route: 048
     Dates: start: 20160907, end: 20160909
  86. LANSOPRAZOLE [Concomitant]
     Active Substance: LANSOPRAZOLE
     Dosage: 30 MG, 1X/DAY
     Dates: start: 20170103, end: 20170109
  87. COTRIMOXAZOLE [Concomitant]
     Active Substance: SULFAMETHOXAZOLE\TRIMETHOPRIM
     Indication: Productive cough
     Dosage: 1800 MG, 3X/DAY
     Route: 042
     Dates: start: 20161222, end: 20161223
  88. SODIUM CHLORIDE [Concomitant]
     Active Substance: SODIUM CHLORIDE
     Dosage: UNK
     Dates: start: 20170118, end: 20170119
  89. DEXTROSE [Concomitant]
     Active Substance: DEXTROSE
     Dosage: PRN
     Route: 042
     Dates: start: 20171118, end: 20171119
  90. DEXTROSE\SODIUM CHLORIDE [Concomitant]
     Active Substance: DEXTROSE\SODIUM CHLORIDE
     Indication: Vomiting
     Dosage: AS NEEDED
     Dates: start: 20171119, end: 20171121

REACTIONS (10)
  - Neoplasm progression [Fatal]
  - Neutropenic sepsis [Recovered/Resolved]
  - Productive cough [Recovered/Resolved]
  - Vomiting [Recovered/Resolved]
  - Vomiting [Recovered/Resolved]
  - Vomiting [Recovered/Resolved]
  - Vomiting [Recovered/Resolved]
  - Oropharyngeal pain [Recovered/Resolved]
  - Oral candidiasis [Recovering/Resolving]
  - Oral candidiasis [Recovered/Resolved]

NARRATIVE: CASE EVENT DATE: 20160901
